FAERS Safety Report 22269722 (Version 2)
Quarter: 2023Q2

REPORT INFORMATION
  Report Type: Report from Study
  Country: US (occurrence: US)
  Receive Date: 20230501
  Receipt Date: 20230614
  Transmission Date: 20230722
  Serious: Yes (Hospitalization, Other)
  Sender: FDA-Public Use
  Company Number: US-MYLANLABS-2023M1044883

PATIENT
  Age: 72 Year
  Sex: Female

DRUGS (5)
  1. ZOLOFT [Suspect]
     Active Substance: SERTRALINE HYDROCHLORIDE
     Indication: Product used for unknown indication
     Dosage: 100 MILLIGRAM, QD
     Route: 065
  2. ZOLOFT [Suspect]
     Active Substance: SERTRALINE HYDROCHLORIDE
     Dosage: UNK
     Route: 065
  3. OFEV [Suspect]
     Active Substance: NINTEDANIB
     Indication: Pulmonary fibrosis
     Dosage: 300 MILLIGRAM, QD (150 MILLIGRAM EVERY 12 HOURS)
     Route: 048
  4. OFEV [Suspect]
     Active Substance: NINTEDANIB
     Indication: Interstitial lung disease
     Dosage: 200 MILLIGRAM, QD (100 MILLIGRAM TWICE DAILY)
     Route: 048
  5. OFEV [Suspect]
     Active Substance: NINTEDANIB
     Indication: Idiopathic pulmonary fibrosis

REACTIONS (17)
  - Idiopathic pulmonary fibrosis [Recovering/Resolving]
  - Chronic obstructive pulmonary disease [Unknown]
  - Faeces hard [Not Recovered/Not Resolved]
  - Lymphadenitis [Recovered/Resolved]
  - Anal incontinence [Unknown]
  - Sinusitis [Recovered/Resolved]
  - Decreased appetite [Recovering/Resolving]
  - Epistaxis [Unknown]
  - Cough [Unknown]
  - Faeces soft [Unknown]
  - Diarrhoea [Recovered/Resolved]
  - Blood cholesterol increased [Unknown]
  - Fatigue [Unknown]
  - Constipation [Not Recovered/Not Resolved]
  - Weight decreased [Recovering/Resolving]
  - Nausea [Recovering/Resolving]
  - Depression [Unknown]

NARRATIVE: CASE EVENT DATE: 20210801
